FAERS Safety Report 13010422 (Version 4)
Quarter: 2017Q1

REPORT INFORMATION
  Report Type: Spontaneous
  Country: US (occurrence: US)
  Receive Date: 20161208
  Receipt Date: 20170130
  Transmission Date: 20170428
  Serious: No
  Sender: FDA-Public Use
  Company Number: US-PFIZER INC-2016436829

PATIENT
  Age: 68 Year
  Sex: Male
  Weight: 88.44 kg

DRUGS (2)
  1. SUTENT [Suspect]
     Active Substance: SUNITINIB MALATE
     Indication: METASTATIC RENAL CELL CARCINOMA
     Dosage: 50 MG, CYCLIC (2 WEEKS ON/1 WEEK OFF)
  2. SUTENT [Suspect]
     Active Substance: SUNITINIB MALATE
     Dosage: 50 MG, (EVERY OTHER DAY FOR 4 WKS + 2 WKS OFF) (28 DAYS ON/14 DAYS OFF)
     Dates: start: 20161110, end: 20170123

REACTIONS (4)
  - Incision site complication [Recovered/Resolved]
  - Paraesthesia [Not Recovered/Not Resolved]
  - Incision site pain [Recovered/Resolved]
  - Fatigue [Recovered/Resolved]

NARRATIVE: CASE EVENT DATE: 201609
